FAERS Safety Report 9766191 (Version 1)
Quarter: 2013Q4

REPORT INFORMATION
  Report Type: Spontaneous
  Country: US (occurrence: None)
  Receive Date: 20131213
  Receipt Date: 20131213
  Transmission Date: 20140711
  Serious: Yes (Other)
  Sender: FDA-Public Use
  Company Number: 2013SA030191

PATIENT
  Sex: Male

DRUGS (1)
  1. ICY HOT CREAM / UNKNOWN / UNKNOWN [Suspect]
     Indication: PRODUCT USED FOR UNKNOWN INDICATION
     Route: 061

REACTIONS (10)
  - Thermal burn [None]
  - Scar [None]
  - Pruritus [None]
  - Rash [None]
  - Blister [None]
  - Skin exfoliation [None]
  - Scratch [None]
  - Contusion [None]
  - Skin discolouration [None]
  - Discomfort [None]
